FAERS Safety Report 22240336 (Version 1)
Quarter: 2023Q2

REPORT INFORMATION
  Report Type: Spontaneous
  Country: US (occurrence: US)
  Receive Date: 20230421
  Receipt Date: 20230421
  Transmission Date: 20230721
  Serious: No
  Sender: FDA-Public Use
  Company Number: US-ALLERGAN-2214573US

PATIENT
  Sex: Female

DRUGS (1)
  1. RESTASIS [Suspect]
     Active Substance: CYCLOSPORINE
     Indication: Dry eye
     Dosage: 2 GTT, BID
     Route: 047

REACTIONS (8)
  - Accidental exposure to product [Unknown]
  - Ocular discomfort [Unknown]
  - Abnormal sensation in eye [Not Recovered/Not Resolved]
  - Eye irritation [Unknown]
  - Vision blurred [Unknown]
  - Drug hypersensitivity [Unknown]
  - Eye pain [Not Recovered/Not Resolved]
  - Product delivery mechanism issue [Unknown]

NARRATIVE: CASE EVENT DATE: 20220101
